FAERS Safety Report 14823121 (Version 2)
Quarter: 2018Q2

REPORT INFORMATION
  Report Type: Spontaneous
  Country: FR (occurrence: FR)
  Receive Date: 20180427
  Receipt Date: 20180501
  Transmission Date: 20180711
  Serious: Yes (Other)
  Sender: FDA-Public Use
  Company Number: FR-009507513-1803FRA010823

PATIENT
  Age: 80 Year
  Sex: Female
  Weight: 63 kg

DRUGS (3)
  1. EUTHYRAL [Concomitant]
     Active Substance: LEVOTHYROXINE SODIUM\LIOTHYRONINE SODIUM
     Indication: THYROID DISORDER
     Dosage: UNK
  2. DIPROSTENE [Suspect]
     Active Substance: BETAMETHASONE DIPROPIONATE\BETAMETHASONE SODIUM PHOSPHATE
     Indication: MUSCULOSKELETAL STIFFNESS
     Dosage: IN THE MIDDLE AND RING FINGERS OF THE RIGHT HAND
     Dates: start: 20180322
  3. DIPROSTENE [Suspect]
     Active Substance: BETAMETHASONE DIPROPIONATE\BETAMETHASONE SODIUM PHOSPHATE
     Indication: TRIGGER FINGER

REACTIONS (18)
  - Malaise [Unknown]
  - Dizziness [Unknown]
  - Palpitations [Unknown]
  - Chest pain [Unknown]
  - Fatigue [Unknown]
  - Abdominal pain upper [Unknown]
  - Hot flush [Unknown]
  - Dyspnoea [Unknown]
  - Gastrointestinal pain [Unknown]
  - Feeling hot [Unknown]
  - Migraine [Unknown]
  - Erythema [Unknown]
  - Nausea [Unknown]
  - Injection site pain [Unknown]
  - Burning sensation [Unknown]
  - Diplegia [Unknown]
  - Confusional state [Unknown]
  - Sciatica [Unknown]

NARRATIVE: CASE EVENT DATE: 20180322
